FAERS Safety Report 18090543 (Version 3)
Quarter: 2020Q3

REPORT INFORMATION
  Report Type: Other
  Country: US (occurrence: US)
  Receive Date: 20200730
  Receipt Date: 20200807
  Transmission Date: 20201103
  Serious: Yes (Hospitalization)
  Sender: FDA-Public Use
  Company Number: US-ROCHE-2650678

PATIENT
  Sex: Male

DRUGS (2)
  1. ACTEMRA [Suspect]
     Active Substance: TOCILIZUMAB
  2. ACTEMRA [Suspect]
     Active Substance: TOCILIZUMAB
     Indication: GIANT CELL ARTERITIS
     Dosage: INJECT 162 MG SUBCUTANEOUSLY EVERY WEEK
     Route: 058

REACTIONS (4)
  - Blindness unilateral [Unknown]
  - Pain [Unknown]
  - Balance disorder [Not Recovered/Not Resolved]
  - Peripheral swelling [Unknown]
